FAERS Safety Report 14329476 (Version 35)
Quarter: 2021Q1

REPORT INFORMATION
  Report Type: Report from Study
  Country: JP (occurrence: JP)
  Receive Date: 20171227
  Receipt Date: 20210129
  Transmission Date: 20210419
  Serious: Yes (Life-Threatening, Hospitalization)
  Sender: FDA-Public Use
  Company Number: JP-PFIZER INC-2017544925

PATIENT
  Age: 49 Year
  Sex: Male
  Weight: 63.4 kg

DRUGS (16)
  1. HEPARINOID OIL BASED CREAM NICHIIKO [Concomitant]
     Dosage: 1 DF, UNK
     Dates: start: 20171101, end: 20171216
  2. CELECOX [Concomitant]
     Active Substance: CELECOXIB
     Dosage: 200 MG, UNK
     Dates: start: 20171124, end: 20171221
  3. TAKECAB [Concomitant]
     Active Substance: VONOPRAZAN FUMARATE
     Dosage: 10 MG, UNK
     Dates: start: 20171125, end: 20171223
  4. AZUNOL [Concomitant]
     Indication: CATHETER MANAGEMENT
     Dosage: 1 DF
     Dates: start: 20171101, end: 20171216
  5. RANMARK [Concomitant]
     Active Substance: DENOSUMAB
     Dosage: 120 MG, UNK
     Dates: start: 20171206, end: 20171207
  6. LOXOPROFEN SODIUM [Concomitant]
     Active Substance: LOXOPROFEN SODIUM
     Dosage: 60 MG, UNK
     Dates: start: 20171117, end: 20171215
  7. HEPARINOID [Concomitant]
     Active Substance: CHONDROITIN SULFATE (BOVINE)
     Dosage: 1 DF, SPRAY
     Route: 061
     Dates: start: 20171119, end: 20180316
  8. URSODIOL. [Concomitant]
     Active Substance: URSODIOL
     Dosage: 100 MG, UNK
     Dates: start: 20171018, end: 20171223
  9. CEFCAPENE PIVOXIL HYDROCHLORIDE [Concomitant]
     Active Substance: CEFCAPENE PIVOXIL HYDROCHLORIDE
     Dosage: 100 MG, UNK
     Dates: start: 20171204, end: 20171208
  10. FERROMIA [Concomitant]
     Active Substance: SODIUM FERROUS CITRATE
     Dosage: 50 MG, UNK
     Dates: start: 20171117, end: 20171223
  11. PEMBROLIZUMAB. [Suspect]
     Active Substance: PEMBROLIZUMAB
     Indication: RENAL CELL CARCINOMA
     Dosage: 200 MG, EVERY 3 WEEKS (VOLUME OF INFUSION: 108 ML) (CYCLE 1)
     Route: 042
     Dates: start: 20171101, end: 20171101
  12. CALONAL [Concomitant]
     Active Substance: ACETAMINOPHEN
     Dosage: 200 MG, UNK
     Dates: start: 20170929, end: 20171222
  13. ALBUMIN HUMAN [Concomitant]
     Active Substance: ALBUMIN HUMAN
     Dosage: 1 DF, UNK
     Dates: start: 20171201, end: 20171203
  14. AXITINIB [Suspect]
     Active Substance: AXITINIB
     Indication: RENAL CELL CARCINOMA
     Dosage: 5 MG, 1X/DAY (STARTING DOSE AT 5MG DAILY, FLUCTUATED DOSES)
     Route: 048
     Dates: start: 20171101, end: 20171212
  15. AXITINIB [Suspect]
     Active Substance: AXITINIB
     Dosage: 3 MG, DAILY
     Route: 048
     Dates: start: 20171213, end: 20171213
  16. PEMBROLIZUMAB. [Suspect]
     Active Substance: PEMBROLIZUMAB
     Dosage: 200 MG, EVERY 3 WEEKS
     Route: 042
     Dates: start: 20171208, end: 20171208

REACTIONS (2)
  - Myocarditis [Not Recovered/Not Resolved]
  - Hepatic function abnormal [Recovered/Resolved]

NARRATIVE: CASE EVENT DATE: 20171216
